FAERS Safety Report 9342395 (Version 1)
Quarter: 2013Q2

REPORT INFORMATION
  Report Type: Spontaneous
  Country: GB (occurrence: None)
  Receive Date: 20130607
  Receipt Date: 20130607
  Transmission Date: 20140414
  Serious: Yes (Other)
  Sender: FDA-Public Use
  Company Number: 2013-2339

PATIENT
  Sex: 0

DRUGS (1)
  1. SOMATULINE AUTOGEL [Suspect]
     Indication: ACROMEGALY

REACTIONS (8)
  - Sciatic nerve injury [None]
  - Injection site inflammation [None]
  - Injection site scar [None]
  - Feeling cold [None]
  - Injection site pain [None]
  - Drug administered at inappropriate site [None]
  - Injection site extravasation [None]
  - Blood growth hormone increased [None]
